FAERS Safety Report 14400463 (Version 1)
Quarter: 2018Q1

REPORT INFORMATION
  Report Type: Spontaneous
  Country: IT (occurrence: IT)
  Receive Date: 20180117
  Receipt Date: 20180117
  Transmission Date: 20180509
  Serious: Yes (Other)
  Sender: FDA-Public Use
  Company Number: IT-ROCHE-2054392

PATIENT

DRUGS (1)
  1. RITUXIMAB. [Suspect]
     Active Substance: RITUXIMAB
     Indication: HENOCH-SCHONLEIN PURPURA
     Route: 041

REACTIONS (4)
  - Dermatitis bullous [Unknown]
  - Intentional product use issue [Unknown]
  - Off label use [Unknown]
  - Urticaria [Unknown]
